FAERS Safety Report 6120605-X (Version None)
Quarter: 2009Q1

REPORT INFORMATION
  Report Type: 
  Country: None (occurrence: None)
  Receive Date: 20090312
  Receipt Date: 20090312
  Transmission Date: 20090719
  Serious: Yes (Other)
  Sender: FDA-Public Use
  Company Number: None

PATIENT
  Age: 72 Year
  Sex: Male

DRUGS (1)
  1. PROAIR HFA [Suspect]
     Indication: ASTHMA
     Dosage: INHALE 2 PUFFS EVERY 4 HOURS
     Route: 055
     Dates: start: 20090130

REACTIONS (5)
  - CHEST DISCOMFORT [None]
  - CONDITION AGGRAVATED [None]
  - FEELING ABNORMAL [None]
  - PRODUCT QUALITY ISSUE [None]
  - WHEEZING [None]
